FAERS Safety Report 9260594 (Version 1)
Quarter: 2013Q2

REPORT INFORMATION
  Report Type: Spontaneous
  Country: FR (occurrence: FR)
  Receive Date: 20130429
  Receipt Date: 20130429
  Transmission Date: 20140414
  Serious: Yes (Other)
  Sender: FDA-Public Use
  Company Number: FR-JNJFOC-20130200121

PATIENT
  Age: 27 Year
  Sex: Female
  Weight: 64 kg

DRUGS (2)
  1. REMICADE [Suspect]
     Indication: CROHN^S DISEASE
     Dosage: 5 A TO 10 MG/KG
     Route: 042
     Dates: start: 2008, end: 2012
  2. IMUREL [Suspect]
     Indication: PRODUCT USED FOR UNKNOWN INDICATION
     Dosage: 2.5 TO 3 MG/KG
     Route: 048
     Dates: start: 2004

REACTIONS (3)
  - Pulmonary tuberculosis [Unknown]
  - Peritoneal tuberculosis [Unknown]
  - Exposure during pregnancy [Recovered/Resolved]
